FAERS Safety Report 18706233 (Version 4)
Quarter: 2021Q4

REPORT INFORMATION
  Report Type: Report from Study
  Country: CA (occurrence: CA)
  Receive Date: 20210106
  Receipt Date: 20211202
  Transmission Date: 20220303
  Serious: No
  Sender: FDA-Public Use
  Company Number: CA-ABBVIE-20K-028-3565603-00

PATIENT
  Sex: Female

DRUGS (5)
  1. RINVOQ [Suspect]
     Active Substance: UPADACITINIB
     Indication: Rheumatoid arthritis
     Route: 048
     Dates: start: 20200810
  2. RINVOQ [Suspect]
     Active Substance: UPADACITINIB
     Route: 048
  3. RINVOQ [Suspect]
     Active Substance: UPADACITINIB
     Route: 048
  4. RINVOQ [Suspect]
     Active Substance: UPADACITINIB
     Route: 048
  5. IRON [Concomitant]
     Active Substance: IRON
     Indication: Product used for unknown indication
     Route: 048

REACTIONS (11)
  - Alopecia [Not Recovered/Not Resolved]
  - Spondylitis [Unknown]
  - Pain in extremity [Unknown]
  - Pain in extremity [Unknown]
  - Joint range of motion decreased [Unknown]
  - COVID-19 [Unknown]
  - Rheumatoid arthritis [Recovering/Resolving]
  - Dizziness [Not Recovered/Not Resolved]
  - Hypoaesthesia [Not Recovered/Not Resolved]
  - Arthralgia [Not Recovered/Not Resolved]
  - Back pain [Unknown]

NARRATIVE: CASE EVENT DATE: 20200101
